FAERS Safety Report 5677323-1 (Version None)
Quarter: 2008Q1

REPORT INFORMATION
  Report Type: 
  Country: None (occurrence: None)
  Receive Date: 20080324
  Receipt Date: 20080314
  Transmission Date: 20080703
  Serious: Yes (Disabling)
  Sender: FDA-Public Use
  Company Number: US-MERCK-0704USA05979

PATIENT
  Age: 42 Year
  Sex: Male

DRUGS (9)
  1. FOSAMAX [Suspect]
     Indication: OSTEOPOROSIS
     Route: 048
     Dates: start: 20000101, end: 20050101
  2. FOSAMAX PLUS D [Suspect]
     Route: 048
     Dates: end: 20050607
  3. PREDNISONE [Suspect]
     Route: 065
  4. NAPROXEN [Concomitant]
     Indication: RHEUMATOID ARTHRITIS
     Route: 065
     Dates: start: 20011101
  5. IBUPROFEN [Concomitant]
     Indication: RHEUMATOID ARTHRITIS
     Route: 065
     Dates: start: 20011101
  6. METHOTREXATE [Concomitant]
     Indication: RHEUMATOID ARTHRITIS
     Route: 065
     Dates: start: 20001201, end: 20070501
  7. METHOTREXATE [Concomitant]
     Route: 065
     Dates: start: 20080301
  8. OXYCODONE [Concomitant]
     Indication: RHEUMATOID ARTHRITIS
     Route: 065
     Dates: start: 20010901
  9. ENBREL [Suspect]
     Indication: RHEUMATOID ARTHRITIS
     Route: 065

REACTIONS (18)
  - ANAEMIA [None]
  - CHONDROMALACIA [None]
  - DENTAL CARIES [None]
  - DRUG HYPERSENSITIVITY [None]
  - GINGIVAL BLEEDING [None]
  - GINGIVAL SWELLING [None]
  - GINGIVITIS [None]
  - INJURY [None]
  - MENISCUS LESION [None]
  - OSTEONECROSIS [None]
  - PAIN [None]
  - PERIODONTAL DISEASE [None]
  - RESORPTION BONE INCREASED [None]
  - RHEUMATOID ARTHRITIS [None]
  - TOOTH DEPOSIT [None]
  - TOOTH LOSS [None]
  - TOOTHACHE [None]
  - VITAMIN D DEFICIENCY [None]
